FAERS Safety Report 5947362-1 (Version None)
Quarter: 2008Q4

REPORT INFORMATION
  Report Type: 
  Country: None (occurrence: None)
  Receive Date: 20081106
  Receipt Date: 20081027
  Transmission Date: 20090506
  Serious: Yes (Death, Hospitalization)
  Sender: FDA-Public Use
  Company Number: 8038613

PATIENT
  Age: 50 Year
  Sex: Female
  Weight: 67 kg

DRUGS (10)
  1. LEVETIRACETAM [Suspect]
     Indication: CONVULSION
     Dosage: PO
     Route: 048
  2. HYZAAR [Concomitant]
  3. ASPIRIN [Concomitant]
  4. BENICAR HCT [Concomitant]
  5. PLAVIX [Concomitant]
  6. MUCINEX [Concomitant]
  7. CARBAMAZEPINE [Concomitant]
  8. ACTIVELLA [Concomitant]
  9. NAPROSYN [Concomitant]
  10. HORMONE REPLACEMENT (ANDROGENS AND FEMALE SEX HORMONES IN COMB) [Concomitant]

REACTIONS (18)
  - BLOOD CHLORIDE DECREASED [None]
  - BLOOD GLUCOSE INCREASED [None]
  - BLOOD SODIUM DECREASED [None]
  - CARDIO-RESPIRATORY ARREST [None]
  - CEREBRAL HAEMATOMA [None]
  - CEREBRAL HAEMORRHAGE [None]
  - COMA [None]
  - CONVULSION [None]
  - GAZE PALSY [None]
  - HYDROCEPHALUS [None]
  - HYPERTENSION [None]
  - INTRACRANIAL PRESSURE INCREASED [None]
  - INTRAVENTRICULAR HAEMORRHAGE [None]
  - LOSS OF CONSCIOUSNESS [None]
  - LYMPHOCYTE PERCENTAGE DECREASED [None]
  - SINUS TACHYCARDIA [None]
  - UNRESPONSIVE TO STIMULI [None]
  - WHITE BLOOD CELL COUNT INCREASED [None]
